FAERS Safety Report 5135880-8 (Version None)
Quarter: 2006Q4

REPORT INFORMATION
  Report Type: 
  Country: None (occurrence: None)
  Receive Date: 20061020
  Receipt Date: 20061004
  Transmission Date: 20070319
  Serious: Yes (Hospitalization)
  Sender: FDA-Public Use
  Company Number: US-2006-026575

PATIENT
  Age: 39 Year
  Sex: Male
  Weight: 74.8 kg

DRUGS (12)
  1. BETASERON [Suspect]
     Indication: RELAPSING-REMITTING MULTIPLE SCLEROSIS
     Dosage: 8 MIU, EVERY 2D, SUBCUTANEOUS
     Route: 058
     Dates: start: 20050201
  2. TESTIM [Concomitant]
  3. ARICEPT [Concomitant]
  4. TENORMIN [Concomitant]
  5. BACLOFEN [Concomitant]
  6. PROZAC [Concomitant]
  7. VICODIN [Concomitant]
  8. LAMICTAL [Concomitant]
  9. METADATE CD [Concomitant]
  10. NEURONTIN [Concomitant]
  11. PROVIGIL [Concomitant]
  12. ZANAFLEX [Concomitant]

REACTIONS (4)
  - ARTHROPOD BITE [None]
  - CULTURE WOUND POSITIVE [None]
  - INJECTION SITE CELLULITIS [None]
  - STAPHYLOCOCCAL INFECTION [None]
